FAERS Safety Report 7059507-3 (Version None)
Quarter: 2010Q4

REPORT INFORMATION
  Report Type: 
  Country: None (occurrence: None)
  Receive Date: 20101025
  Receipt Date: 20100324
  Transmission Date: 20110411
  Serious: No
  Sender: FDA-Public Use
  Company Number: US-ASTRAZENECA-2010SE13047

PATIENT
  Age: 63 Year
  Sex: Female

DRUGS (5)
  1. TENORETIC 100 [Suspect]
     Route: 048
  2. CARVEDILOL [Suspect]
  3. NIFEDIPINE [Suspect]
  4. NORTRIPTYLINE [Suspect]
  5. TRAZODONE [Suspect]

REACTIONS (2)
  - BLOOD PRESSURE INCREASED [None]
  - OVERDOSE [None]
